FAERS Safety Report 15000367 (Version 1)
Quarter: 2018Q2

REPORT INFORMATION
  Report Type: Spontaneous
  Country: JP (occurrence: JP)
  Receive Date: 20180612
  Receipt Date: 20180612
  Transmission Date: 20180711
  Serious: Yes (Other)
  Sender: FDA-Public Use
  Company Number: JP-PFIZER INC-2018226145

PATIENT
  Sex: Female

DRUGS (2)
  1. SIGMART [Concomitant]
     Active Substance: NICORANDIL
     Dosage: UNK
  2. CARDENALIN [Suspect]
     Active Substance: DOXAZOSIN MESYLATE
     Dosage: UNK
     Route: 048

REACTIONS (3)
  - Blood pressure fluctuation [Unknown]
  - Palpitations [Unknown]
  - Tachycardia [Unknown]
